FAERS Safety Report 23152842 (Version 1)
Quarter: 2023Q4

REPORT INFORMATION
  Report Type: Spontaneous
  Country: JP (occurrence: JP)
  Receive Date: 20231107
  Receipt Date: 20231107
  Transmission Date: 20240110
  Serious: Yes (Hospitalization, Other)
  Sender: FDA-Public Use
  Company Number: JP-Accord-388444

PATIENT
  Age: 57 Year
  Sex: Male

DRUGS (6)
  1. FUROSEMIDE [Suspect]
     Active Substance: FUROSEMIDE
     Indication: Polyuria
  2. TOLVAPTAN [Suspect]
     Active Substance: TOLVAPTAN
     Indication: Polyuria
  3. DOBUTAMINE [Concomitant]
     Active Substance: DOBUTAMINE HYDROCHLORIDE
     Indication: Cardiac failure
  4. DOPAMINE [Concomitant]
     Active Substance: DOPAMINE HYDROCHLORIDE
     Indication: Cardiac failure
  5. DAPAGLIFLOZIN [Concomitant]
     Active Substance: DAPAGLIFLOZIN
     Indication: Dilated cardiomyopathy
  6. CANDESARTAN [Concomitant]
     Active Substance: CANDESARTAN
     Indication: Dilated cardiomyopathy
     Dosage: LOW-DOSE

REACTIONS (3)
  - Acute kidney injury [Unknown]
  - Condition aggravated [Unknown]
  - Hypoperfusion [Unknown]
